FAERS Safety Report 16495859 (Version 1)
Quarter: 2019Q2

REPORT INFORMATION
  Report Type: Spontaneous
  Country: CH (occurrence: CH)
  Receive Date: 20190628
  Receipt Date: 20190628
  Transmission Date: 20190711
  Serious: Yes (Hospitalization, Other)
  Sender: FDA-Public Use
  Company Number: CH-BAUSCH-BL-2019-018681

PATIENT
  Age: 84 Year
  Sex: Female

DRUGS (5)
  1. ACICLOVIR [Concomitant]
     Active Substance: ACYCLOVIR
     Indication: MENINGITIS BACTERIAL
  2. RIFAMPICIN [Concomitant]
     Active Substance: RIFAMPIN
     Indication: MENINGITIS BACTERIAL
  3. FLUCLOXACILLIN [Concomitant]
     Active Substance: FLUCLOXACILLIN
     Indication: MENINGITIS BACTERIAL
  4. GENTAMICIN. [Suspect]
     Active Substance: GENTAMICIN
     Indication: MENINGITIS BACTERIAL
     Route: 065
  5. DEXAMETHASONE. [Concomitant]
     Active Substance: DEXAMETHASONE
     Indication: MENINGITIS BACTERIAL

REACTIONS (2)
  - Nephropathy toxic [Unknown]
  - Renal failure [Unknown]
